FAERS Safety Report 5702594-2 (Version None)
Quarter: 2008Q2

REPORT INFORMATION
  Report Type: 
  Country: None (occurrence: None)
  Receive Date: 20080410
  Receipt Date: 20080410
  Transmission Date: 20081010
  Serious: Yes (Hospitalization)
  Sender: FDA-Public Use
  Company Number: None

PATIENT
  Age: 67 Year
  Sex: Female
  Weight: 65.7716 kg

DRUGS (1)
  1. AVELOX [Suspect]
     Dates: start: 20080219, end: 20080222

REACTIONS (4)
  - BURNING SENSATION [None]
  - DELUSION [None]
  - PARANOIA [None]
  - PRURITUS [None]
